FAERS Safety Report 14272711 (Version 1)
Quarter: 2017Q4

REPORT INFORMATION
  Report Type: Report from Study
  Country: US (occurrence: US)
  Receive Date: 20171211
  Receipt Date: 20171211
  Transmission Date: 20180321
  Serious: Yes (Other)
  Sender: FDA-Public Use
  Company Number: US-GILEAD-2017-0309175

PATIENT
  Age: 51 Year
  Sex: Male

DRUGS (13)
  1. ACETAMINOPHEN. [Concomitant]
     Active Substance: ACETAMINOPHEN
  2. EMLA [Concomitant]
     Active Substance: LIDOCAINE\PRILOCAINE
  3. TRIAMCINOLON                       /00031901/ [Concomitant]
  4. GRANISETRON [Concomitant]
     Active Substance: GRANISETRON
  5. COUMADIN [Concomitant]
     Active Substance: WARFARIN SODIUM
  6. DIPHENHYDRAMINE. [Concomitant]
     Active Substance: DIPHENHYDRAMINE
  7. MEPERIDINE                         /00016301/ [Concomitant]
     Active Substance: MEPERIDINE
  8. ACYCLOVIR                          /00587301/ [Concomitant]
     Active Substance: ACYCLOVIR
  9. DEXAMETHASONE. [Concomitant]
     Active Substance: DEXAMETHASONE
  10. IDELALISIB [Suspect]
     Active Substance: IDELALISIB
     Indication: B-CELL LYMPHOMA
     Dosage: 150 MG, BID
     Route: 065
     Dates: start: 20170914
  11. CIPRO [Concomitant]
     Active Substance: CIPROFLOXACIN HYDROCHLORIDE
  12. METRONIDAL [Concomitant]
  13. RANITIDINE. [Concomitant]
     Active Substance: RANITIDINE

REACTIONS (1)
  - Disease progression [Not Recovered/Not Resolved]
